FAERS Safety Report 19577662 (Version 2)
Quarter: 2021Q3

REPORT INFORMATION
  Report Type: Report from Study
  Country: US (occurrence: US)
  Receive Date: 20210719
  Receipt Date: 20210824
  Transmission Date: 20211014
  Serious: Yes (Hospitalization)
  Sender: FDA-Public Use
  Company Number: US-ROCHE-2870191

PATIENT
  Age: 43 Year
  Sex: Female
  Weight: 50.6 kg

DRUGS (26)
  1. HERCEPTIN [Concomitant]
     Active Substance: TRASTUZUMAB
     Dates: start: 20190730
  2. TAMOXIFEN [Concomitant]
     Active Substance: TAMOXIFEN
     Dates: start: 201912
  3. LASIX [Concomitant]
     Active Substance: FUROSEMIDE
  4. PALBOCICLIB [Concomitant]
     Active Substance: PALBOCICLIB
     Dates: start: 20200713
  5. DILAUDID [Concomitant]
     Active Substance: HYDROMORPHONE HYDROCHLORIDE
  6. NARCAN [Concomitant]
     Active Substance: NALOXONE HYDROCHLORIDE
  7. CARAFATE [Concomitant]
     Active Substance: SUCRALFATE
  8. EFFEXOR [Concomitant]
     Active Substance: VENLAFAXINE HYDROCHLORIDE
  9. TRASTUZUMAB EMTANSINE [Suspect]
     Active Substance: ADO-TRASTUZUMAB EMTANSINE
     Indication: BREAST CANCER METASTATIC
     Route: 042
     Dates: start: 20210401, end: 20210624
  10. BLINDED TUCATINIB/PLACEBO [Suspect]
     Active Substance: TUCATINIB
     Indication: BREAST CANCER METASTATIC
     Route: 048
     Dates: start: 20210401, end: 20210706
  11. PEPCID [Concomitant]
     Active Substance: FAMOTIDINE
  12. LINZESS [Concomitant]
     Active Substance: LINACLOTIDE
  13. ZOFRAN [Concomitant]
     Active Substance: ONDANSETRON HYDROCHLORIDE
  14. PERJETA [Concomitant]
     Active Substance: PERTUZUMAB
     Dates: start: 20190730
  15. TYLENOL [Concomitant]
     Active Substance: ACETAMINOPHEN
  16. COMPAZINE [Concomitant]
     Active Substance: PROCHLORPERAZINE MALEATE
  17. CARBOPLATIN. [Concomitant]
     Active Substance: CARBOPLATIN
     Dates: start: 20190730
  18. BENTYL [Concomitant]
     Active Substance: DICYCLOMINE HYDROCHLORIDE
  19. MONODOX (UNITED STATES) [Concomitant]
  20. PRILOSEC [Concomitant]
     Active Substance: OMEPRAZOLE MAGNESIUM
  21. LETROZOLE. [Concomitant]
     Active Substance: LETROZOLE
     Dates: start: 20200713
  22. METAMUCIL [Concomitant]
     Active Substance: PLANTAGO SEED
  23. TAXOTERE [Concomitant]
     Active Substance: DOCETAXEL
     Dates: start: 20190730
  24. GLUCOPHAGE [Concomitant]
     Active Substance: METFORMIN HYDROCHLORIDE
  25. MIRALAX [Concomitant]
     Active Substance: POLYETHYLENE GLYCOL 3350
  26. GAS?X [Concomitant]
     Active Substance: DIMETHICONE

REACTIONS (1)
  - Hyponatraemia [Recovered/Resolved]

NARRATIVE: CASE EVENT DATE: 20210706
